FAERS Safety Report 4995327-9 (Version None)
Quarter: 2006Q2

REPORT INFORMATION
  Report Type: 
  Country: None (occurrence: None)
  Receive Date: 20060508
  Receipt Date: 20050415
  Transmission Date: 20061013
  Serious: Yes (Hospitalization, Disabling, Other)
  Sender: FDA-Public Use
  Company Number: US-MERCK-0504USA03335

PATIENT
  Age: 52 Year
  Sex: Male
  Weight: 120 kg

DRUGS (4)
  1. VIOXX [Suspect]
     Indication: SPINAL DISORDER
     Route: 048
     Dates: start: 20000124, end: 20020209
  2. VIOXX [Suspect]
     Route: 048
     Dates: start: 20020901, end: 20030402
  3. VIOXX [Suspect]
     Indication: ARTHRALGIA
     Route: 048
     Dates: start: 20000124, end: 20020209
  4. VIOXX [Suspect]
     Route: 048
     Dates: start: 20020901, end: 20030402

REACTIONS (10)
  - BLINDNESS [None]
  - BLOOD PRESSURE INADEQUATELY CONTROLLED [None]
  - CAROTID ARTERY ATHEROMA [None]
  - CAROTID ARTERY STENOSIS [None]
  - CEREBROVASCULAR ACCIDENT [None]
  - HEADACHE [None]
  - HYPERTENSION [None]
  - HYPOGLYCAEMIA [None]
  - POLYTRAUMATISM [None]
  - ULCER HAEMORRHAGE [None]
